APPROVED DRUG PRODUCT: ATENOLOL
Active Ingredient: ATENOLOL
Strength: 25MG
Dosage Form/Route: TABLET;ORAL
Application: A077877 | Product #001 | TE Code: AB
Applicant: IPCA LABORATORIES LTD
Approved: Dec 27, 2006 | RLD: No | RS: No | Type: RX